FAERS Safety Report 6786905-5 (Version None)
Quarter: 2010Q2

REPORT INFORMATION
  Report Type: 
  Country: None (occurrence: None)
  Receive Date: 20100623
  Receipt Date: 20100621
  Transmission Date: 20101027
  Serious: Yes (Other)
  Sender: FDA-Public Use
  Company Number: US-B.I. PHARMACEUTICALS,INC./RIDGEFIELD-2010-BP-06992BP

PATIENT
  Sex: Female

DRUGS (2)
  1. APTIVUS/RITONAVIR CAPSULES [Suspect]
  2. VIRAMUNE [Suspect]

REACTIONS (1)
  - HEPATIC FAILURE [None]
